FAERS Safety Report 7008657-6 (Version None)
Quarter: 2010Q3

REPORT INFORMATION
  Report Type: 
  Country: None (occurrence: None)
  Receive Date: 20100921
  Receipt Date: 20100821
  Transmission Date: 20110219
  Serious: Yes (Other)
  Sender: FDA-Public Use
  Company Number: BVT-000653

PATIENT
  Age: 68 Year
  Sex: Female

DRUGS (1)
  1. KINERET [Suspect]
     Indication: PRODUCT USED FOR UNKNOWN INDICATION

REACTIONS (2)
  - HYDROCEPHALUS [None]
  - VERTIGO [None]
